FAERS Safety Report 7394558-0 (Version None)
Quarter: 2011Q2

REPORT INFORMATION
  Report Type: 
  Country: None (occurrence: None)
  Receive Date: 20110405
  Receipt Date: 20110330
  Transmission Date: 20111010
  Serious: Yes (Other)
  Sender: FDA-Public Use
  Company Number: GB-TEVA-274309ISR

PATIENT
  Age: 63 Year
  Sex: Male
  Weight: 130 kg

DRUGS (1)
  1. AMLODIPINE BESYLATE [Suspect]
     Indication: HYPERTENSION
     Route: 048
     Dates: start: 20110310, end: 20110315

REACTIONS (3)
  - HYPERTENSION [None]
  - CARDIAC FAILURE CONGESTIVE [None]
  - PRODUCT SUBSTITUTION ISSUE [None]
